FAERS Safety Report 6359298-5 (Version None)
Quarter: 2009Q3

REPORT INFORMATION
  Report Type: 
  Country: None (occurrence: None)
  Receive Date: 20090917
  Receipt Date: 20090910
  Transmission Date: 20100115
  Serious: Yes (Hospitalization)
  Sender: FDA-Public Use
  Company Number: SG-ROCHE-650230

PATIENT
  Age: 14 Year
  Sex: Male
  Weight: 87 kg

DRUGS (4)
  1. TAMIFLU [Suspect]
     Dosage: TAMIFLU WAS ALSO INDICATED FOR TONSILITIS.
     Route: 048
     Dates: start: 20090809, end: 20090809
  2. KLACID [Concomitant]
     Dates: start: 20090809
  3. PARACETAMOL [Concomitant]
     Dates: start: 20090806
  4. TERBUTALINE SULFATE [Concomitant]
     Dates: start: 20090806

REACTIONS (1)
  - MENTAL DISORDER [None]
